FAERS Safety Report 9971017 (Version 1)
Quarter: 2014Q1

REPORT INFORMATION
  Report Type: Report from Study
  Country: US (occurrence: US)
  Receive Date: 20140306
  Receipt Date: 20140306
  Transmission Date: 20141002
  Serious: No
  Sender: FDA-Public Use
  Company Number: US-ABBVIE-13P-163-1153315-00

PATIENT
  Age: 47 Year
  Sex: Male

DRUGS (10)
  1. HUMIRA [Suspect]
     Indication: CROHN^S DISEASE
     Dosage: LOADING DOSE X 1
     Route: 058
     Dates: start: 20130919
  2. LEXAPRO [Suspect]
     Indication: DEPRESSION
     Dosage: 20 MILLIGRAMS DAILY
     Route: 048
  3. BALSALAZIDE [Concomitant]
     Indication: CROHN^S DISEASE
     Route: 048
  4. MORPHINE [Concomitant]
     Indication: PAIN
     Route: 048
  5. IMURAN [Concomitant]
     Indication: CROHN^S DISEASE
     Dosage: THREE TABLETS DAILY
     Route: 048
  6. VITAMIN C [Concomitant]
     Indication: PRODUCT USED FOR UNKNOWN INDICATION
     Route: 048
  7. IRON [Concomitant]
     Indication: PRODUCT USED FOR UNKNOWN INDICATION
     Route: 048
  8. ZOFRAN [Concomitant]
     Indication: NAUSEA
     Route: 048
  9. KCL [Concomitant]
     Indication: BLOOD POTASSIUM DECREASED
     Dosage: LIQUID, TWICE A DAY
     Route: 048
  10. MARIJUANA [Concomitant]
     Indication: PRODUCT USED FOR UNKNOWN INDICATION

REACTIONS (13)
  - Dizziness [Recovered/Resolved]
  - Gastric dilatation [Recovered/Resolved]
  - Malaise [Recovered/Resolved]
  - Lacrimation increased [Recovered/Resolved]
  - Sensation of heaviness [Recovered/Resolved]
  - Malaise [Recovered/Resolved]
  - Chromaturia [Not Recovered/Not Resolved]
  - Haematospermia [Recovered/Resolved]
  - Gastric dilatation [Not Recovered/Not Resolved]
  - Injection site pain [Recovered/Resolved]
  - Injection site haemorrhage [Recovered/Resolved]
  - Injection site erythema [Recovered/Resolved]
  - Haematuria [Recovered/Resolved]
